FAERS Safety Report 4791952-9 (Version None)
Quarter: 2005Q4

REPORT INFORMATION
  Report Type: 
  Country: None (occurrence: None)
  Receive Date: 20051005
  Receipt Date: 20050919
  Transmission Date: 20060501
  Serious: Yes (Hospitalization, Other)
  Sender: FDA-Public Use
  Company Number: DE_050616280

PATIENT
  Age: 86 Year
  Sex: Female
  Weight: 62 kg

DRUGS (9)
  1. FORTEO [Suspect]
     Indication: OSTEOPOROSIS
     Dosage: 20 UG
     Dates: start: 20050321, end: 20050509
  2. DURAGESIC-100 [Concomitant]
  3. CALCILAC KT [Concomitant]
  4. PREDNISOLONE [Concomitant]
  5. NORVASC [Concomitant]
  6. CIBACEN (BENAZEPRIL HYDROCHLORIDE) [Concomitant]
  7. PANTOPRAZOLE SODIUM [Concomitant]
  8. LACTULOSE [Concomitant]
  9. NOVALGIN (METAMIZOLE SODIUM MONOHYDRATE) [Concomitant]

REACTIONS (30)
  - ABDOMINAL DISTENSION [None]
  - ABDOMINAL PAIN UPPER [None]
  - AORTIC VALVE INCOMPETENCE [None]
  - BACK PAIN [None]
  - BILIRUBIN CONJUGATED INCREASED [None]
  - BLOOD CREATINE PHOSPHOKINASE MB INCREASED [None]
  - BLOOD CREATININE INCREASED [None]
  - BUNDLE BRANCH BLOCK RIGHT [None]
  - CHILLS [None]
  - CONDUCTION DISORDER [None]
  - CULTURE URINE POSITIVE [None]
  - CYANOSIS [None]
  - DYSPNOEA [None]
  - ESCHERICHIA INFECTION [None]
  - FIBRIN D DIMER INCREASED [None]
  - GENERAL PHYSICAL HEALTH DETERIORATION [None]
  - HAEMOGLOBIN DECREASED [None]
  - HYPERHIDROSIS [None]
  - JOINT RANGE OF MOTION DECREASED [None]
  - MYOGLOBIN BLOOD [None]
  - OBSTRUCTIVE AIRWAYS DISORDER [None]
  - PANCREATITIS [None]
  - PERICARDIAL EFFUSION [None]
  - PO2 DECREASED [None]
  - RALES [None]
  - RESPIRATORY FAILURE [None]
  - SPEECH DISORDER [None]
  - SUPRAVENTRICULAR EXTRASYSTOLES [None]
  - TRICUSPID VALVE INCOMPETENCE [None]
  - URINARY TRACT INFECTION [None]
